FAERS Safety Report 21130521 (Version 2)
Quarter: 2022Q3

REPORT INFORMATION
  Report Type: Spontaneous
  Country: US (occurrence: US)
  Receive Date: 20220726
  Receipt Date: 20220728
  Transmission Date: 20221027
  Serious: Yes (Other)
  Sender: FDA-Public Use
  Company Number: US-JNJFOC-20220738825

PATIENT
  Age: 61 Year
  Sex: Female

DRUGS (1)
  1. TYLENOL EXTRA STRENGTH [Suspect]
     Active Substance: ACETAMINOPHEN
     Indication: Migraine
     Dosage: 2 CAPLETS AND IF NEEDED MORE ONLY TOOK ONE. ONCE A DAY, SOME TIME TWICE A DAY
     Route: 048
     Dates: start: 20220326, end: 20220702

REACTIONS (8)
  - Paralysis [Recovered/Resolved]
  - Suspected product tampering [Unknown]
  - Incorrect dose administered [Recovered/Resolved]
  - Dysphagia [Recovered/Resolved]
  - Choking sensation [Recovered/Resolved]
  - Abdominal pain upper [Recovered/Resolved]
  - Chest discomfort [Recovered/Resolved]
  - Dyspnoea [Recovered/Resolved]

NARRATIVE: CASE EVENT DATE: 20220326
